FAERS Safety Report 7357457-6 (Version None)
Quarter: 2011Q1

REPORT INFORMATION
  Report Type: 
  Country: None (occurrence: None)
  Receive Date: 20110307
  Receipt Date: 20101104
  Transmission Date: 20110831
  Serious: No
  Sender: FDA-Public Use
  Company Number: AEUSA201000409

PATIENT
  Age: 65 Year
  Sex: Male

DRUGS (8)
  1. PROLASTIN-C [Suspect]
  2. PROLASTIN-C [Suspect]
  3. PROLASTIN-C [Suspect]
     Indication: ALPHA-1 ANTI-TRYPSIN DEFICIENCY
     Dosage: IV
     Route: 042
     Dates: start: 20100401
  4. PROLASTIN-C [Suspect]
  5. PROLASTIN-C [Suspect]
  6. PROLASTIN-C [Suspect]
  7. PROLASTIN-C [Suspect]
  8. NORVASC [Concomitant]

REACTIONS (5)
  - DYSPNOEA [None]
  - OXYGEN SATURATION DECREASED [None]
  - DISEASE PROGRESSION [None]
  - PULMONARY FUNCTION TEST DECREASED [None]
  - ALPHA-1 ANTI-TRYPSIN DEFICIENCY [None]
